FAERS Safety Report 9166234 (Version 2)
Quarter: 2013Q2

REPORT INFORMATION
  Report Type: Spontaneous
  Country: AU (occurrence: AU)
  Receive Date: 20130315
  Receipt Date: 20130501
  Transmission Date: 20140414
  Serious: Yes (Other)
  Sender: FDA-Public Use
  Company Number: AU-ASTRAZENECA-2013SE15974

PATIENT
  Age: 36 Year
  Sex: Female

DRUGS (2)
  1. RHINOCORT HAYFEVER [Suspect]
     Indication: INCREASED UPPER AIRWAY SECRETION
     Dosage: OTC PRODUCT
     Route: 045
     Dates: start: 20130305, end: 20130306
  2. RHINOCORT HAYFEVER [Suspect]
     Indication: NASOPHARYNGITIS
     Dosage: OTC PRODUCT
     Route: 045
     Dates: start: 20130305, end: 20130306

REACTIONS (4)
  - Exposure during pregnancy [Unknown]
  - Epistaxis [Not Recovered/Not Resolved]
  - Hypersensitivity [Not Recovered/Not Resolved]
  - Off label use [Recovered/Resolved]
